FAERS Safety Report 8064786-X (Version None)
Quarter: 2012Q1

REPORT INFORMATION
  Report Type: 
  Country: None (occurrence: None)
  Receive Date: 20120124
  Receipt Date: 20120116
  Transmission Date: 20120608
  Serious: Yes (Hospitalization)
  Sender: FDA-Public Use
  Company Number: US-BIOGENIDEC-2011BI038839

PATIENT
  Age: 62 Year
  Sex: Male

DRUGS (1)
  1. TYSABRI [Suspect]
     Indication: MULTIPLE SCLEROSIS
     Route: 042
     Dates: start: 20070827, end: 20110628

REACTIONS (3)
  - GENERAL PHYSICAL HEALTH DETERIORATION [None]
  - CEREBELLAR INFARCTION [None]
  - DRUG INEFFECTIVE [None]
